FAERS Safety Report 21040128 (Version 3)
Quarter: 2022Q3

REPORT INFORMATION
  Report Type: Report from Study
  Country: US (occurrence: US)
  Receive Date: 20220704
  Receipt Date: 20220805
  Transmission Date: 20221026
  Serious: Yes (Other)
  Sender: FDA-Public Use
  Company Number: NVSC2022US150485

PATIENT
  Sex: Female

DRUGS (1)
  1. MAYZENT [Suspect]
     Active Substance: SIPONIMOD
     Indication: Product used for unknown indication
     Dosage: UNK
     Route: 065

REACTIONS (13)
  - Hypertension [Unknown]
  - Multiple sclerosis [Unknown]
  - Blood glucose increased [Unknown]
  - Vision blurred [Unknown]
  - Heart rate increased [Unknown]
  - Orthostatic hypotension [Unknown]
  - Pain [Unknown]
  - Rash [Unknown]
  - White blood cell count increased [Unknown]
  - Serum ferritin decreased [Unknown]
  - Frustration tolerance decreased [Unknown]
  - Tremor [Not Recovered/Not Resolved]
  - Drug ineffective [Unknown]
